FAERS Safety Report 25029997 (Version 1)
Quarter: 2025Q1

REPORT INFORMATION
  Report Type: Spontaneous
  Country: CN (occurrence: CN)
  Receive Date: 20250303
  Receipt Date: 20250303
  Transmission Date: 20250409
  Serious: No
  Sender: ALKEM
  Company Number: CN-ALKEM LABORATORIES LIMITED-CN-ALKEM-2024-14860

PATIENT
  Age: 51 Year
  Sex: Male

DRUGS (4)
  1. LANSOPRAZOLE [Suspect]
     Active Substance: LANSOPRAZOLE
     Indication: Helicobacter infection
     Dosage: 30 MILLIGRAM, BID (TABLET) (30 MIN BEFORE MEALS), (BISMUTH QUADRUPLE THERAPY)
     Route: 065
  2. BISMUTH SUBCITRATE [Suspect]
     Active Substance: BISMUTH SUBCITRATE
     Indication: Helicobacter infection
     Dosage: 150 MILLIGRAM, TID (30 MIN BEFORE MEALS), (BISMUTH QUADRUPLE THERAPY)
     Route: 065
  3. METRONIDAZOLE [Suspect]
     Active Substance: METRONIDAZOLE
     Indication: Helicobacter infection
     Dosage: 400 MILLIGRAM, TID (IMMEDIATELY AFTER MEALS) (BISMUTH QUADRUPLE THERAPY)
     Route: 065
  4. TETRACYCLINE [Suspect]
     Active Substance: TETRACYCLINE
     Indication: Helicobacter infection
     Dosage: 500 MILLIGRAM, TID (TABLET) (IMMEDIATELY AFTER MEALS) (BISMUTH QUADRUPLE THERAPY)
     Route: 065

REACTIONS (1)
  - Treatment noncompliance [Unknown]
